FAERS Safety Report 5529431-3 (Version None)
Quarter: 2007Q4

REPORT INFORMATION
  Report Type: 
  Country: None (occurrence: None)
  Receive Date: 20071129
  Receipt Date: 20071122
  Transmission Date: 20080405
  Serious: Yes (Other)
  Sender: FDA-Public Use
  Company Number: GB-ROCHE-525343

PATIENT
  Age: 45 Year
  Sex: Female
  Weight: 115.6 kg

DRUGS (10)
  1. ORLISTAT [Suspect]
     Indication: OBESITY
     Route: 048
     Dates: start: 20070926
  2. ANTIDEPRESSANTS [Concomitant]
  3. SIMVASTATIN [Concomitant]
     Route: 048
  4. RAMIPRIL [Concomitant]
     Route: 048
  5. LANSOPRAZOLE [Concomitant]
     Route: 048
  6. METFORMIN HCL [Concomitant]
  7. ROSIGLITAZONE [Concomitant]
  8. FERROUS SULFATE TAB [Concomitant]
  9. RISPERIDONE [Concomitant]
  10. PHENELZINE [Concomitant]

REACTIONS (1)
  - SUICIDAL IDEATION [None]
